FAERS Safety Report 25483231 (Version 1)
Quarter: 2025Q2

REPORT INFORMATION
  Report Type: Spontaneous
  Country: US (occurrence: US)
  Receive Date: 20250626
  Receipt Date: 20250626
  Transmission Date: 20250717
  Serious: No
  Sender: PFIZER
  Company Number: US-PFIZER INC-202500127727

PATIENT
  Age: 84 Year
  Sex: Female
  Weight: 80.29 kg

DRUGS (2)
  1. IBRANCE [Suspect]
     Active Substance: PALBOCICLIB
     Indication: Breast cancer female
  2. ANASTROZOLE [Suspect]
     Active Substance: ANASTROZOLE
     Indication: Breast cancer female
     Dosage: 1 MG, 1X/DAY

REACTIONS (3)
  - Pruritus genital [Unknown]
  - Visual impairment [Unknown]
  - Rhinorrhoea [Unknown]
